FAERS Safety Report 16704607 (Version 5)
Quarter: 2020Q1

REPORT INFORMATION
  Report Type: Report from Study
  Country: US (occurrence: US)
  Receive Date: 20190814
  Receipt Date: 20200210
  Transmission Date: 20200409
  Serious: Yes (Other)
  Sender: FDA-Public Use
  Company Number: PHEH2019US033547

PATIENT
  Sex: Female

DRUGS (1)
  1. GILENYA [Suspect]
     Active Substance: FINGOLIMOD HYDROCHLORIDE
     Indication: MULTIPLE SCLEROSIS
     Dosage: 0.5 MG, QD
     Route: 048
     Dates: start: 20181121

REACTIONS (11)
  - Urinary tract infection [Unknown]
  - Joint swelling [Unknown]
  - Cognitive disorder [Unknown]
  - Paraesthesia [Unknown]
  - Fatigue [Unknown]
  - Hypoaesthesia [Unknown]
  - Muscle spasms [Unknown]
  - Pain in extremity [Unknown]
  - Memory impairment [Unknown]
  - Mood swings [Unknown]
  - Bronchitis [Unknown]
